FAERS Safety Report 10610898 (Version 1)
Quarter: 2014Q4

REPORT INFORMATION
  Report Type: Spontaneous
  Country: US (occurrence: US)
  Receive Date: 20141126
  Receipt Date: 20141126
  Transmission Date: 20150529
  Serious: No
  Sender: FDA-Public Use
  Company Number: US-GLAXOSMITHKLINE-A1084701A

PATIENT

DRUGS (14)
  1. ALBUTEROL. [Concomitant]
     Active Substance: ALBUTEROL
  2. KLOR-CON [Concomitant]
     Active Substance: POTASSIUM CHLORIDE
  3. VITAMIN A [Concomitant]
     Active Substance: VITAMIN A
  4. VITAMIN D [Concomitant]
     Active Substance: CHOLECALCIFEROL
  5. VITAMIN B [Concomitant]
     Active Substance: VITAMIN B
  6. SUPPLEMENT [Concomitant]
     Active Substance: UNSPECIFIED INGREDIENT
  7. VITAMIN E [Concomitant]
     Active Substance: .ALPHA.-TOCOPHEROL
  8. DEXAMETHASONE. [Concomitant]
     Active Substance: DEXAMETHASONE
  9. FLOVENT [Suspect]
     Active Substance: FLUTICASONE PROPIONATE
     Route: 055
  10. NORVASC [Concomitant]
     Active Substance: AMLODIPINE BESYLATE
  11. VITAMIN C [Concomitant]
     Active Substance: ASCORBIC ACID
  12. ZINC [Concomitant]
     Active Substance: ZINC\ZINC CHLORIDE
  13. CEFTRIAXONE. [Concomitant]
     Active Substance: CEFTRIAXONE
  14. KADCYLA [Concomitant]
     Active Substance: ADO-TRASTUZUMAB EMTANSINE

REACTIONS (1)
  - Tooth discolouration [Not Recovered/Not Resolved]
